FAERS Safety Report 4315579-8 (Version None)
Quarter: 2004Q1

REPORT INFORMATION
  Report Type: 
  Country: None (occurrence: None)
  Receive Date: 20040311
  Receipt Date: 20040311
  Transmission Date: 20041129
  Serious: Yes (Other)
  Sender: FDA-Public Use
  Company Number: None

PATIENT
  Age: 25 Year
  Sex: Female
  Weight: 104.3273 kg

DRUGS (1)
  1. SEROQUEL [Suspect]
     Indication: DEPRESSION
     Dosage: ONE TAB AT NIGHT
     Dates: start: 20040306, end: 20040306

REACTIONS (2)
  - SLEEP DISORDER [None]
  - SLEEP WALKING [None]
